FAERS Safety Report 6215605-5 (Version None)
Quarter: 2009Q2

REPORT INFORMATION
  Report Type: 
  Country: None (occurrence: None)
  Receive Date: 20090605
  Receipt Date: 20090529
  Transmission Date: 20091009
  Serious: Yes (Life-Threatening)
  Sender: FDA-Public Use
  Company Number: GB-TEVA-196641ISR

PATIENT
  Age: 28 Year
  Sex: Male

DRUGS (1)
  1. TRIMETHOPRIM [Suspect]
     Route: 048

REACTIONS (5)
  - BONE MARROW FAILURE [None]
  - HEPATIC FAILURE [None]
  - HYPERPYREXIA [None]
  - RENAL FAILURE [None]
  - RHABDOMYOLYSIS [None]
